FAERS Safety Report 6500215-2 (Version None)
Quarter: 2009Q4

REPORT INFORMATION
  Report Type: 
  Country: None (occurrence: None)
  Receive Date: 20091216
  Receipt Date: 20091211
  Transmission Date: 20100525
  Serious: Yes (Hospitalization, Disabling)
  Sender: FDA-Public Use
  Company Number: FI-SANOFI-AVENTIS-2009SA004725

PATIENT
  Age: 27 Year
  Sex: Female

DRUGS (4)
  1. STILNOCT [Suspect]
     Indication: INSOMNIA
     Route: 048
     Dates: start: 20091015, end: 20091113
  2. STILNOCT [Interacting]
     Route: 048
     Dates: start: 20091015, end: 20091113
  3. FLUVOXAMINE MALEATE [Interacting]
     Indication: DEPRESSION
     Route: 048
     Dates: start: 20050101
  4. PROMAZINE HYDROCHLORIDE [Concomitant]
     Indication: DRUG USE FOR UNKNOWN INDICATION
     Dosage: ^STARTED APPROXIMATELY 4 YEARS AGO^.
     Route: 065

REACTIONS (7)
  - DRUG INTERACTION [None]
  - DRUG WITHDRAWAL CONVULSIONS [None]
  - FOAMING AT MOUTH [None]
  - INTENTIONAL OVERDOSE [None]
  - JOINT DISLOCATION [None]
  - LOSS OF CONSCIOUSNESS [None]
  - WITHDRAWAL SYNDROME [None]
